FAERS Safety Report 18461373 (Version 1)
Quarter: 2020Q4

REPORT INFORMATION
  Report Type: Spontaneous
  Country: US (occurrence: US)
  Receive Date: 20201104
  Receipt Date: 20201104
  Transmission Date: 20210114
  Serious: No
  Sender: FDA-Public Use
  Company Number: US-HORIZON-2020HZN00813

PATIENT
  Age: 43 Year
  Sex: Female
  Weight: 59 kg

DRUGS (4)
  1. CABERGOLINE. [Concomitant]
     Active Substance: CABERGOLINE
  2. SELENIUM [Concomitant]
     Active Substance: SELENIUM
  3. METHIMAZOLE. [Concomitant]
     Active Substance: METHIMAZOLE
  4. TEPEZZA [Suspect]
     Active Substance: TEPROTUMUMAB-TRBW
     Indication: TOXIC GOITRE
     Dosage: Q 3 WEEKS
     Route: 050

REACTIONS (2)
  - Blood pressure increased [Unknown]
  - Malaise [Unknown]
